FAERS Safety Report 5340123-6 (Version None)
Quarter: 2007Q2

REPORT INFORMATION
  Report Type: 
  Country: None (occurrence: None)
  Receive Date: 20070525
  Receipt Date: 20070525
  Transmission Date: 20071010
  Serious: Yes (Hospitalization)
  Sender: FDA-Public Use
  Company Number: None

PATIENT
  Age: 67 Year
  Sex: Male

DRUGS (14)
  1. ASPIRIN [Suspect]
     Indication: CARDIOVASCULAR EVENT PROPHYLAXIS
     Dosage: 81 MG DAY PO
     Route: 048
  2. PLAVIX [Suspect]
     Indication: CARDIOVASCULAR EVENT PROPHYLAXIS
     Dosage: 75MG DAY PO
     Route: 048
  3. EVISTA [Concomitant]
  4. AMANTADINE HCL [Concomitant]
  5. .. [Concomitant]
  6. LOPID [Concomitant]
  7. ASPIRIN [Concomitant]
  8. BENAZEPRIL HYDROCHLORIDE [Concomitant]
  9. ZETIA [Concomitant]
  10. LEXAPRO [Concomitant]
  11. CARAFATE [Concomitant]
  12. REMERON [Concomitant]
  13. OMEGA 3 ACIDS [Concomitant]
  14. REQUIP [Concomitant]

REACTIONS (5)
  - ANAEMIA [None]
  - DUODENAL ULCER [None]
  - GASTRIC ULCER [None]
  - GASTROINTESTINAL HAEMORRHAGE [None]
  - HYPOTENSION [None]
